FAERS Safety Report 14617321 (Version 1)
Quarter: 2018Q1

REPORT INFORMATION
  Report Type: Spontaneous
  Country: DE (occurrence: DE)
  Receive Date: 20180309
  Receipt Date: 20180309
  Transmission Date: 20180509
  Serious: Yes (Life-Threatening, Other)
  Sender: FDA-Public Use
  Company Number: DE-ASTRAZENECA-2018SE26228

PATIENT
  Age: 63 Year
  Sex: Male
  Weight: 65 kg

DRUGS (8)
  1. PREGABALIN. [Concomitant]
     Active Substance: PREGABALIN
  2. FORXIGA [Suspect]
     Active Substance: DAPAGLIFLOZIN
     Indication: TYPE 2 DIABETES MELLITUS
     Route: 048
  3. TORASEMIDE [Concomitant]
     Active Substance: TORSEMIDE
  4. PANTOPRAZOLE [Concomitant]
     Active Substance: PANTOPRAZOLE
  5. SITAGLIPTIN [Suspect]
     Active Substance: SITAGLIPTIN
     Route: 065
  6. SPIRONOLACTONE. [Concomitant]
     Active Substance: SPIRONOLACTONE
  7. CARBAMAZEPIN [Concomitant]
     Active Substance: CARBAMAZEPINE
  8. PRAVASTATIN. [Concomitant]
     Active Substance: PRAVASTATIN

REACTIONS (2)
  - Ketoacidosis [Recovering/Resolving]
  - Polyuria [Recovered/Resolved]

NARRATIVE: CASE EVENT DATE: 20180102
